FAERS Safety Report 18145037 (Version 1)
Quarter: 2020Q3

REPORT INFORMATION
  Report Type: Spontaneous
  Country: DE (occurrence: DE)
  Receive Date: 20200813
  Receipt Date: 20200813
  Transmission Date: 20201103
  Serious: Yes (Death, Hospitalization, Other)
  Sender: FDA-Public Use
  Company Number: DE-PFIZER INC-2020311967

PATIENT
  Age: 83 Year
  Sex: Female
  Weight: 45 kg

DRUGS (7)
  1. CLOPIDOGREL [Concomitant]
     Active Substance: CLOPIDOGREL BISULFATE
     Dosage: 75 MG, 1X/DAY, 1?0?0
  2. L?THYROXINE [LEVOTHYROXINE SODIUM] [Concomitant]
     Active Substance: LEVOTHYROXINE SODIUM
     Dosage: 75 UG, 1X/DAY, 1?0?0
  3. FENOFIBRAT [Concomitant]
     Active Substance: FENOFIBRATE
     Dosage: 200 MG, 1X/DAY, 0?0?1
  4. VYNDAQEL [Suspect]
     Active Substance: TAFAMIDIS MEGLUMINE
     Indication: HEREDITARY NEUROPATHIC AMYLOIDOSIS
     Dosage: 61 MG, 1X/DAY, 1?0?0
     Route: 048
     Dates: start: 20200319, end: 20200524
  5. ASPIRIN. [Concomitant]
     Active Substance: ASPIRIN
     Dosage: 100 MG, 1X/DAY, 0?0?1
  6. METOPROLOL. [Concomitant]
     Active Substance: METOPROLOL
     Dosage: 1.5 DF, 1X/DAY, 1,5?0?0
  7. TORASEMID [Concomitant]
     Active Substance: TORSEMIDE
     Dosage: 5 MG, 1X/DAY, 0?1?0

REACTIONS (5)
  - Cerebrovascular accident [Unknown]
  - Disease recurrence [Fatal]
  - Cerebrovascular accident [Fatal]
  - Product use in unapproved indication [Unknown]
  - Off label use [Unknown]

NARRATIVE: CASE EVENT DATE: 20200319
